FAERS Safety Report 9928491 (Version 2)
Quarter: 2014Q1

REPORT INFORMATION
  Report Type: Report from Study
  Country: CA (occurrence: CA)
  Receive Date: 20140227
  Receipt Date: 20140312
  Transmission Date: 20141002
  Serious: Yes (Other)
  Sender: FDA-Public Use
  Company Number: CA-JNJFOC-20140214742

PATIENT
  Age: 44 Year
  Sex: Male
  Weight: 66.3 kg

DRUGS (6)
  1. REMICADE [Suspect]
     Indication: ANKYLOSING SPONDYLITIS
     Route: 042
     Dates: start: 201307
  2. REMICADE [Suspect]
     Indication: ANKYLOSING SPONDYLITIS
     Route: 042
     Dates: start: 20120302
  3. REMICADE [Suspect]
     Indication: CROHN^S DISEASE
     Route: 042
     Dates: start: 20120302
  4. REMICADE [Suspect]
     Indication: CROHN^S DISEASE
     Route: 042
     Dates: start: 201307
  5. CELEBREX [Concomitant]
     Route: 065
  6. BENADRYL [Concomitant]
     Indication: PREMEDICATION
     Route: 065

REACTIONS (6)
  - Oxygen saturation decreased [Unknown]
  - Hot flush [Unknown]
  - Chest discomfort [Unknown]
  - Dyspnoea [Unknown]
  - Throat irritation [Unknown]
  - Back pain [Unknown]
